FAERS Safety Report 16958867 (Version 2)
Quarter: 2019Q4

REPORT INFORMATION
  Report Type: Spontaneous
  Country: US (occurrence: US)
  Receive Date: 20191024
  Receipt Date: 20191226
  Transmission Date: 20200122
  Serious: Yes (Death)
  Sender: FDA-Public Use
  Company Number: US-PFIZER INC-2019250860

PATIENT
  Age: 88 Year
  Sex: Female
  Weight: 61.22 kg

DRUGS (1)
  1. LYRICA [Suspect]
     Active Substance: PREGABALIN
     Indication: PAIN
     Dosage: 150 MG, 1X/DAY,(TAKE 1 CAPSULE NIGHTLY)
     Route: 048
     Dates: start: 20190521

REACTIONS (1)
  - Death [Fatal]

NARRATIVE: CASE EVENT DATE: 20191019
